FAERS Safety Report 14748245 (Version 1)
Quarter: 2018Q2

REPORT INFORMATION
  Report Type: Not Available
  Country: SE (occurrence: IT)
  Receive Date: 20180411
  Receipt Date: 20180411
  Transmission Date: 20180711
  Serious: Yes (Other)
  Sender: FDA-Public Use
  Company Number: SE-ANIPHARMA-2018-IT-000034

PATIENT
  Age: 64 Year
  Sex: Female

DRUGS (4)
  1. CANDESARTAN HCT [Suspect]
     Active Substance: CANDESARTAN CILEXETIL\HYDROCHLOROTHIAZIDE
     Indication: HYPERTENSION
     Dosage: 1 DOSAGE FORM DAILY
     Route: 048
     Dates: start: 20180305, end: 20180313
  2. (NEBIVOLOL) [Concomitant]
     Route: 048
  3. ENTACT(ESCITALOPRAM OXALATE) [Suspect]
     Active Substance: ESCITALOPRAM OXALATE
     Dosage: 1 DF DAILY
     Route: 048
     Dates: start: 20180308, end: 20180313
  4. VASEXTEN(BARNIDIPINE HYDROCHLORIDE [Concomitant]
     Dosage: 20 MG CAPSULE
     Route: 048

REACTIONS (3)
  - Extrapyramidal disorder [Unknown]
  - Hypokalaemia [Recovered/Resolved]
  - Hyponatraemia [Recovered/Resolved]

NARRATIVE: CASE EVENT DATE: 20180313
